FAERS Safety Report 9170288 (Version 1)
Quarter: 2013Q1

REPORT INFORMATION
  Report Type: Spontaneous
  Country: US (occurrence: None)
  Receive Date: 20130315
  Receipt Date: 20130315
  Transmission Date: 20140127
  Serious: Yes (Other)
  Sender: FDA-Public Use
  Company Number: None

PATIENT
  Age: 44 Year
  Sex: Male
  Weight: 99.79 kg

DRUGS (3)
  1. HALOPERIDOL [Suspect]
     Indication: SCHIZOAFFECTIVE DISORDER
     Route: 048
     Dates: start: 20110906, end: 20130314
  2. HALOPERIDOL [Suspect]
     Indication: BIPOLAR DISORDER
     Route: 048
     Dates: start: 20110906, end: 20130314
  3. QUETIAPINE [Suspect]
     Indication: SCHIZOAFFECTIVE DISORDER
     Dates: start: 20120907, end: 20130314

REACTIONS (3)
  - Chest pain [None]
  - Dizziness [None]
  - Supraventricular tachycardia [None]
